FAERS Safety Report 6343760-5 (Version None)
Quarter: 2009Q3

REPORT INFORMATION
  Report Type: 
  Country: None (occurrence: None)
  Receive Date: 20090908
  Receipt Date: 20090831
  Transmission Date: 20100115
  Serious: Yes (Hospitalization)
  Sender: FDA-Public Use
  Company Number: B0580805A

PATIENT
  Sex: Female
  Weight: 42 kg

DRUGS (8)
  1. VALTREX [Suspect]
     Indication: HERPES ZOSTER
     Dosage: 1000MG THREE TIMES PER DAY
     Route: 048
     Dates: start: 20090619, end: 20090623
  2. ENDOXAN [Suspect]
     Indication: SYSTEMIC LUPUS ERYTHEMATOSUS
     Route: 042
     Dates: start: 20090609, end: 20090709
  3. METHOTREXATE [Concomitant]
     Indication: DRUG USE FOR UNKNOWN INDICATION
     Route: 065
  4. PREDNISOLONE [Concomitant]
     Indication: SYSTEMIC LUPUS ERYTHEMATOSUS
     Dosage: 30MG PER DAY
     Route: 048
     Dates: start: 20050501
  5. PERSANTINE [Concomitant]
     Indication: SYSTEMIC LUPUS ERYTHEMATOSUS
     Dosage: 30MG PER DAY
     Route: 048
     Dates: start: 20050501
  6. LAXOBERON [Concomitant]
     Indication: SYSTEMIC LUPUS ERYTHEMATOSUS
     Dosage: 1ML PER DAY
     Route: 048
     Dates: start: 20050501
  7. ALFAROL [Concomitant]
     Indication: SYSTEMIC LUPUS ERYTHEMATOSUS
     Dosage: .5MCG PER DAY
     Route: 048
     Dates: start: 20050501
  8. GASTER D [Concomitant]
     Indication: SYSTEMIC LUPUS ERYTHEMATOSUS
     Dosage: 20MG PER DAY
     Route: 048
     Dates: start: 20050501

REACTIONS (7)
  - DEHYDRATION [None]
  - GENERALISED OEDEMA [None]
  - HYPERHIDROSIS [None]
  - RASH [None]
  - RENAL FAILURE ACUTE [None]
  - SCAB [None]
  - URINE OUTPUT DECREASED [None]
